FAERS Safety Report 6870968-2 (Version None)
Quarter: 2010Q3

REPORT INFORMATION
  Report Type: 
  Country: None (occurrence: None)
  Receive Date: 20100723
  Receipt Date: 20100715
  Transmission Date: 20110219
  Serious: Yes (Other)
  Sender: FDA-Public Use
  Company Number: AT-BRISTOL-MYERS SQUIBB COMPANY-15205214

PATIENT
  Age: 73 Year
  Sex: Male
  Weight: 94 kg

DRUGS (1)
  1. ERBITUX [Suspect]
     Indication: HEAD AND NECK CANCER
     Route: 042

REACTIONS (2)
  - DYSPNOEA [None]
  - HYPERTENSIVE CRISIS [None]
